FAERS Safety Report 15706049 (Version 1)
Quarter: 2018Q4

REPORT INFORMATION
  Report Type: Other
  Country: None (occurrence: US)
  Receive Date: 20181210
  Receipt Date: 20181210
  Transmission Date: 20190205
  Serious: Yes (Hospitalization, Other)
  Sender: FDA-Public Use
  Company Number: US-MEDAC PHARMA, INC.-2059923

PATIENT
  Age: 59 Year
  Sex: Female

DRUGS (4)
  1. NAPROXEN SODIUM. [Concomitant]
     Active Substance: NAPROXEN SODIUM
  2. PREDNISONE. [Concomitant]
     Active Substance: PREDNISONE
  3. METHOTREXATE. [Suspect]
     Active Substance: METHOTREXATE
     Indication: RHEUMATOID ARTHRITIS
  4. ADALIMUMAB [Concomitant]
     Active Substance: ADALIMUMAB

REACTIONS (7)
  - Rash papular [Unknown]
  - Mucosal inflammation [Unknown]
  - Jaundice [Unknown]
  - Scab [Unknown]
  - Rash erythematous [Unknown]
  - Petechiae [Unknown]
  - Toxicity to various agents [Unknown]
